FAERS Safety Report 10728222 (Version 1)
Quarter: 2015Q1

REPORT INFORMATION
  Report Type: Spontaneous
  Country: DK (occurrence: DK)
  Receive Date: 20150121
  Receipt Date: 20150121
  Transmission Date: 20150721
  Serious: Yes (Other)
  Sender: FDA-Public Use
  Company Number: DK-ALLERGAN-1500650US

PATIENT
  Age: 70 Year
  Sex: Female
  Weight: 85 kg

DRUGS (12)
  1. DEX UNK [Suspect]
     Active Substance: UNSPECIFIED INGREDIENT
     Indication: PRODUCT USED FOR UNKNOWN INDICATION
     Dosage: UNK
     Dates: start: 2013, end: 2013
  2. CALCIUM [Concomitant]
     Active Substance: CALCIUM
     Indication: OSTEOPOROSIS PROPHYLAXIS
     Dates: start: 20120101
  3. KETOGAN [Concomitant]
     Active Substance: KETOBEMIDONE HYDROCHLORIDE
     Indication: NEURALGIA
     Dates: start: 19940101
  4. KLORZOXAZON ^DAK^ [Concomitant]
     Indication: NEURALGIA
     Dates: start: 19940101
  5. CONTALGIN [Concomitant]
     Active Substance: MORPHINE SULFATE
     Indication: NEURALGIA
     Dates: start: 19940101
  6. PREDNISOLON [Concomitant]
     Active Substance: PREDNISOLONE
     Indication: RHEUMATOID ARTHRITIS
     Dates: start: 20120101
  7. ANAFRANIL [Concomitant]
     Active Substance: CLOMIPRAMINE HYDROCHLORIDE
     Indication: NEURALGIA
     Dates: start: 19940101
  8. RIVOTRIL [Concomitant]
     Active Substance: CLONAZEPAM
     Indication: NEURALGIA
     Dates: start: 19940101
  9. SAROTEN [Concomitant]
     Active Substance: AMITRIPTYLINE
     Indication: NEURALGIA
     Dates: start: 19940101
  10. TILCOTIL [Concomitant]
     Active Substance: TENOXICAM
     Indication: NEURALGIA
     Dates: start: 19940101
  11. VITAMIN D [Concomitant]
     Active Substance: CHOLECALCIFEROL
     Indication: OSTEOPOROSIS PROPHYLAXIS
     Dates: start: 20120101
  12. PINEX [Concomitant]
     Active Substance: ACETAMINOPHEN
     Indication: NEURALGIA
     Dosage: UNK

REACTIONS (1)
  - Pulmonary fibrosis [Not Recovered/Not Resolved]

NARRATIVE: CASE EVENT DATE: 2013
